FAERS Safety Report 16467793 (Version 1)
Quarter: 2019Q2

REPORT INFORMATION
  Report Type: Spontaneous
  Country: MY (occurrence: MY)
  Receive Date: 20190624
  Receipt Date: 20190624
  Transmission Date: 20190711
  Serious: Yes (Other)
  Sender: FDA-Public Use
  Company Number: MY-GLAXOSMITHKLINE-MY2019GSK111351

PATIENT
  Age: 57 Year
  Sex: Male

DRUGS (1)
  1. ZINNAT [Suspect]
     Active Substance: CEFUROXIME
     Indication: BACTERIAL INFECTION
     Dosage: 250 MG, BID
     Route: 048

REACTIONS (3)
  - Erythema [Unknown]
  - Dermatitis bullous [Unknown]
  - Peripheral swelling [Unknown]
